FAERS Safety Report 9871446 (Version 1)
Quarter: 2014Q1

REPORT INFORMATION
  Report Type: Spontaneous
  Country: US (occurrence: None)
  Receive Date: 20140204
  Receipt Date: 20140204
  Transmission Date: 20141002
  Serious: Yes (Hospitalization, Other)
  Sender: FDA-Public Use
  Company Number: None

PATIENT
  Age: 60 Year
  Sex: Female
  Weight: 177.81 kg

DRUGS (2)
  1. FERRLECIT [Suspect]
     Indication: IRON DEFICIENCY ANAEMIA
     Dosage: 125 MG  WEEKLY  INTRAVENOUS
     Route: 042
     Dates: start: 20140130
  2. CYANOCOBALAMIN [Concomitant]

REACTIONS (2)
  - Syncope [None]
  - Cardio-respiratory arrest [None]
